FAERS Safety Report 10021316 (Version 1)
Quarter: 2014Q1

REPORT INFORMATION
  Report Type: Spontaneous
  Country: US (occurrence: None)
  Receive Date: 20140318
  Receipt Date: 20140318
  Transmission Date: 20141002
  Serious: Yes (Other)
  Sender: FDA-Public Use
  Company Number: None

PATIENT
  Sex: Female
  Weight: 136.08 kg

DRUGS (1)
  1. NORCO 10 325 [Suspect]
     Indication: DRUG INEFFECTIVE
     Dosage: X4 A DAY 4 A DAY
     Dates: start: 20140203

REACTIONS (2)
  - Pain [None]
  - Drug ineffective [None]
